FAERS Safety Report 5736829-7 (Version None)
Quarter: 2008Q2

REPORT INFORMATION
  Report Type: 
  Country: None (occurrence: None)
  Receive Date: 20080508
  Receipt Date: 20080423
  Transmission Date: 20081010
  Serious: Yes (Other)
  Sender: FDA-Public Use
  Company Number: PHHY2008JP05825

PATIENT
  Age: 76 Year
  Sex: Male

DRUGS (1)
  1. VISUDYNE [Suspect]
     Indication: RETINAL VASCULAR DISORDER

REACTIONS (3)
  - DISEASE PROGRESSION [None]
  - MACULAR SCAR [None]
  - RETINAL HAEMORRHAGE [None]
